FAERS Safety Report 25585889 (Version 1)
Quarter: 2025Q3

REPORT INFORMATION
  Report Type: Spontaneous
  Country: EU (occurrence: EU)
  Receive Date: 20250721
  Receipt Date: 20250721
  Transmission Date: 20251020
  Serious: Yes (Other)
  Sender: BRISTOL-MYERS SQUIBB COMPANY
  Company Number: EU-BRISTOL-MYERS SQUIBB COMPANY-2025-099361

PATIENT
  Age: 5 Year
  Sex: Male
  Weight: 44 kg

DRUGS (2)
  1. NIVOLUMAB [Suspect]
     Active Substance: NIVOLUMAB
     Indication: Malignant glioma
     Dates: start: 202006, end: 202301
  2. NASONEX [Concomitant]
     Active Substance: MOMETASONE FUROATE
     Indication: Vasomotor rhinitis
     Dosage: QD
     Route: 045

REACTIONS (6)
  - Epilepsy [Unknown]
  - Autism spectrum disorder [Unknown]
  - Obstructive sleep apnoea syndrome [Unknown]
  - Gastrooesophageal reflux disease [Recovered/Resolved]
  - Oesophagitis [Recovered/Resolved]
  - Duodenal ulcer [Recovered/Resolved]

NARRATIVE: CASE EVENT DATE: 20230901
